FAERS Safety Report 8218169-X (Version None)
Quarter: 2012Q1

REPORT INFORMATION
  Report Type: 
  Country: None (occurrence: None)
  Receive Date: 20120305
  Receipt Date: 20111111
  Transmission Date: 20120608
  Serious: No
  Sender: FDA-Public Use
  Company Number: 1000025415

PATIENT
  Age: 89 Year
  Sex: Female

DRUGS (8)
  1. SYMBICORT (BUDESONIDE, FORMOTEROL) (BUDESONIDE, FORMOTEROL) [Concomitant]
  2. HYZAAR (LOSARTAN, HYDROCHLOROTHIAZIDE) (LOSARTAN, HYDROCHLOROTHIAZIDE) [Concomitant]
  3. ALLEGRA (FEXOFENADINE HYDROCHLORIDE) (FEXOFENADINE HYDROCHLORIDE) [Concomitant]
  4. SPIRIVA (TIOTROPIUM BROMIDE) (TIOTROPIUM BROMIDE) [Concomitant]
  5. DALIRESP [Suspect]
     Indication: ASTHMA
     Dosage: 500 MCG (500 MCG,1 IN 1 D),ORAL
     Route: 048
     Dates: start: 20111104
  6. TIAZAC (DILTIAZEM HYDROCHLORIDE) (DILTIAZEM HYDROCHLORIDE) [Concomitant]
  7. ASPIRIN [Concomitant]
  8. COMBIVENT (IPRATROPIUM , ALBUTEROL) (IPRATROPIUM, ALBUTEROL) [Concomitant]

REACTIONS (2)
  - OFF LABEL USE [None]
  - NAUSEA [None]
